FAERS Safety Report 6051553-1 (Version None)
Quarter: 2009Q1

REPORT INFORMATION
  Report Type: 
  Country: None (occurrence: None)
  Receive Date: 20090126
  Receipt Date: 20090116
  Transmission Date: 20090719
  Serious: Yes (Hospitalization)
  Sender: FDA-Public Use
  Company Number: B0530718A

PATIENT
  Age: 77 Year
  Sex: Female
  Weight: 52 kg

DRUGS (2)
  1. ARIXTRA [Suspect]
     Indication: PULMONARY EMBOLISM
     Dosage: 5MG PER DAY
     Route: 058
     Dates: start: 20080711, end: 20080714
  2. LOVENOX [Suspect]
     Indication: PULMONARY EMBOLISM
     Dosage: .5ML TWICE PER DAY
     Route: 058
     Dates: start: 20080709, end: 20080711

REACTIONS (9)
  - ANAEMIA [None]
  - COAGULATION TIME PROLONGED [None]
  - FATIGUE [None]
  - HAEMATOMA [None]
  - HYPOTENSION [None]
  - RENAL FAILURE ACUTE [None]
  - SHOCK [None]
  - SHOCK HAEMORRHAGIC [None]
  - SOMNOLENCE [None]
